FAERS Safety Report 18247722 (Version 1)
Quarter: 2020Q3

REPORT INFORMATION
  Report Type: Report from Study
  Country: US (occurrence: US)
  Receive Date: 20200909
  Receipt Date: 20200909
  Transmission Date: 20201103
  Serious: Yes (Life-Threatening, Hospitalization, Disabling)
  Sender: FDA-Public Use
  Company Number: US-JNJFOC-A-NJ2018-170068

PATIENT
  Age: 31 Year
  Sex: Male
  Weight: 90.7 kg

DRUGS (24)
  1. LEVOTHYROXINE. [Concomitant]
     Active Substance: LEVOTHYROXINE
     Route: 048
  2. LAMOTRIGINE. [Concomitant]
     Active Substance: LAMOTRIGINE
     Route: 048
  3. CYCLOBENZAPRINE. [Concomitant]
     Active Substance: CYCLOBENZAPRINE
  4. BASAGLAR [Concomitant]
     Active Substance: INSULIN GLARGINE
     Dosage: KWIKPEN U?100
     Route: 058
  5. ALBUTEROL SULFATE. [Concomitant]
     Active Substance: ALBUTEROL SULFATE
  6. OPSUMIT [Suspect]
     Active Substance: MACITENTAN
     Dosage: 10 MG, QD
     Route: 048
     Dates: start: 20180327
  7. WARFARIN [Concomitant]
     Active Substance: WARFARIN
     Route: 048
  8. VENLAFAXINE [Concomitant]
     Active Substance: VENLAFAXINE HYDROCHLORIDE
     Route: 048
  9. OXYCODONE [Concomitant]
     Active Substance: OXYCODONE
     Route: 065
  10. VITAMIN D2 [Concomitant]
     Active Substance: ERGOCALCIFEROL
     Dosage: 1250 MCG (50,000 UNIT) EVERY WEEK BY ORAL ROUTE FOR 90 DAYS
     Route: 048
  11. ACYCLOVIR                          /00587301/ [Concomitant]
     Active Substance: ACYCLOVIR
  12. NOVOLOG [Concomitant]
     Active Substance: INSULIN ASPART
     Route: 058
  13. DOK [Concomitant]
     Active Substance: DOCUSATE SODIUM
  14. ARMODAFINIL. [Concomitant]
     Active Substance: ARMODAFINIL
     Dosage: TAKEN IN THE AM
     Route: 048
  15. WARFARIN [Concomitant]
     Active Substance: WARFARIN
     Route: 048
  16. HYDROCODONE/ACETAMINOPHEN [Concomitant]
     Active Substance: ACETAMINOPHEN\HYDROCODONE
     Dosage: 10/325 MG TABLET
     Route: 065
  17. FERROUS SULFATE. [Concomitant]
     Active Substance: FERROUS SULFATE
     Dosage: 324 MG( 65 MG IRON) TABLET, DELAY RELEASE
     Route: 048
  18. OPSUMIT [Suspect]
     Active Substance: MACITENTAN
     Indication: PULMONARY HYPERTENSION
     Dosage: 10 MG, QD
     Route: 048
     Dates: start: 20150501, end: 20180325
  19. LEVOTHYROXINE. [Concomitant]
     Active Substance: LEVOTHYROXINE
     Route: 048
  20. LISINOPRIL. [Concomitant]
     Active Substance: LISINOPRIL
     Route: 048
  21. GEMFIBROZIL. [Concomitant]
     Active Substance: GEMFIBROZIL
     Route: 048
  22. FONDAPARINUX [Concomitant]
     Active Substance: FONDAPARINUX
     Route: 058
  23. TRUEPLUS GLUCOSE [Concomitant]
     Dosage: 28 GAUGE LANCETS
  24. PANTOPRAZOLE [Concomitant]
     Active Substance: PANTOPRAZOLE
     Dosage: DELAYED RELEASE
     Route: 048

REACTIONS (9)
  - Hypoaesthesia [Recovered/Resolved]
  - Dyspnoea [Unknown]
  - Cerebrovascular accident [Recovered/Resolved]
  - Cerebral haemorrhage [Unknown]
  - Confusional state [Recovered/Resolved]
  - Immune thrombocytopenia [Not Recovered/Not Resolved]
  - Dizziness [Recovered/Resolved]
  - Nausea [Recovered/Resolved]
  - Feeling abnormal [Unknown]

NARRATIVE: CASE EVENT DATE: 20180325
